FAERS Safety Report 6781893-X (Version None)
Quarter: 2010Q2

REPORT INFORMATION
  Report Type: 
  Country: None (occurrence: None)
  Receive Date: 20100621
  Receipt Date: 20100611
  Transmission Date: 20101027
  Serious: Yes (Life-Threatening)
  Sender: FDA-Public Use
  Company Number: GXKR2010GB06505

PATIENT
  Age: 74 Year
  Sex: Female

DRUGS (9)
  1. AMLODIPINE [Suspect]
     Dosage: 5 MG, QD
     Route: 048
     Dates: start: 20100520, end: 20100603
  2. WARFARIN SODIUM [Suspect]
     Indication: ATRIAL FIBRILLATION
     Route: 048
  3. AMILORIDE HYDROCHLORIDE [Concomitant]
     Dosage: 5 MG, QD
  4. DILTIAZEM [Concomitant]
     Dosage: 90 MG, BID
  5. FOLIC ACID [Concomitant]
     Dosage: 5 MG, QD
  6. FUROSEMIDE [Concomitant]
     Dosage: 80 MG, QD
  7. METOPROLOL TARTRATE [Concomitant]
     Dosage: 50 MG, BID
  8. OMEPRAZOLE [Concomitant]
     Dosage: 20 MG, QD
  9. SIMVASTATIN [Concomitant]
     Dosage: 20 MG, QD

REACTIONS (5)
  - DRUG DISPENSING ERROR [None]
  - DRUG EFFECT INCREASED [None]
  - DYSPNOEA [None]
  - GASTROINTESTINAL HAEMORRHAGE [None]
  - INTERNATIONAL NORMALISED RATIO INCREASED [None]
